FAERS Safety Report 22155212 (Version 1)
Quarter: 2023Q1

REPORT INFORMATION
  Report Type: Report from Study
  Country: JP (occurrence: JP)
  Receive Date: 20230330
  Receipt Date: 20230330
  Transmission Date: 20230418
  Serious: Yes (Other)
  Sender: FDA-Public Use
  Company Number: JP-Accord-305765

PATIENT
  Age: 63 Year
  Sex: Female

DRUGS (2)
  1. CISPLATIN [Suspect]
     Active Substance: CISPLATIN
     Indication: Squamous cell carcinoma
     Dosage: MEAN DOSE OF CDDP TO OA WAS 37 (33-49.5) (MG/BODY/COURSE)
  2. SODIUM THIOSULFATE [Concomitant]
     Active Substance: SODIUM THIOSULFATE
     Dosage: INTRAVENOUSLY ADMINISTERED AT A DOSE OF 20 G/M2 TO NEUTRALIZE CDDP
     Route: 042

REACTIONS (1)
  - Blindness [Unknown]
